FAERS Safety Report 17683568 (Version 1)
Quarter: 2020Q2

REPORT INFORMATION
  Report Type: Spontaneous
  Country: US (occurrence: US)
  Receive Date: 20200417
  Receipt Date: 20200417
  Transmission Date: 20200714
  Serious: No
  Sender: FDA-Public Use
  Company Number: None

PATIENT
  Sex: Female
  Weight: 54.43 kg

DRUGS (7)
  1. SUPER B COMPLEX [Concomitant]
     Active Substance: CYANOCOBALAMIN\DEXPANTHENOL\NIACINAMIDE\PYRIDOXINE HYDROCHLORIDE\RIBOFLAVIN 5^-PHOSPHATE SODIUM\THIAMINE HYDROCHLORIDE\VITAMIN B COMPLEX
  2. LO DOSE ASPERINE [Concomitant]
  3. MULTI VIT [Concomitant]
     Active Substance: VITAMINS
  4. METOPROIOL SUCCINATE [Concomitant]
  5. CALCIUM [Concomitant]
     Active Substance: CALCIUM
  6. CLOBETASOL PROPIONATE TOPICAL SOLUTION USP 0.05% [Suspect]
     Active Substance: CLOBETASOL PROPIONATE
     Indication: ALOPECIA AREATA
     Route: 061
     Dates: start: 201911, end: 20200210
  7. VIT FOR HAIR + NAILS [Concomitant]

REACTIONS (1)
  - Vision blurred [None]
